FAERS Safety Report 16015302 (Version 5)
Quarter: 2020Q2

REPORT INFORMATION
  Report Type: Report from Study
  Country: DE (occurrence: DE)
  Receive Date: 20190228
  Receipt Date: 20200622
  Transmission Date: 20200713
  Serious: Yes (Other)
  Sender: FDA-Public Use
  Company Number: DE-ROCHE-2130664

PATIENT
  Sex: Female

DRUGS (9)
  1. DIAZEPAM. [Concomitant]
     Active Substance: DIAZEPAM
     Route: 065
  2. METODURA [Concomitant]
     Active Substance: METOPROLOL TARTRATE
     Dosage: METODURA COMP ?100/12.5 MG
     Route: 065
  3. OCREVUS [Suspect]
     Active Substance: OCRELIZUMAB
     Indication: SECONDARY PROGRESSIVE MULTIPLE SCLEROSIS
     Route: 042
     Dates: start: 20180401
  4. DULOXETINA [DULOXETINE] [Concomitant]
     Active Substance: DULOXETINE
     Route: 065
  5. DIAZEPAM. [Concomitant]
     Active Substance: DIAZEPAM
     Dosage: 1-0-0
     Route: 065
  6. OCREVUS [Suspect]
     Active Substance: OCRELIZUMAB
     Dosage: 3RD INFUSION
     Route: 042
     Dates: start: 20181016
  7. AMINEURIN [Concomitant]
     Active Substance: AMITRIPTYLINE HYDROCHLORIDE
     Route: 065
  8. OCREVUS [Suspect]
     Active Substance: OCRELIZUMAB
     Dosage: NEXT INFUSION ON 19/JUL/2019
     Route: 042
     Dates: start: 20180403
  9. FAMPYRA [Concomitant]
     Active Substance: DALFAMPRIDINE
     Dosage: 1-0-1
     Route: 065

REACTIONS (23)
  - Muscle spasms [Not Recovered/Not Resolved]
  - Haemangioma of liver [Recovered/Resolved]
  - Paraesthesia [Not Recovered/Not Resolved]
  - Fall [Recovered/Resolved]
  - Fine motor skill dysfunction [Not Recovered/Not Resolved]
  - Gait disturbance [Recovering/Resolving]
  - Nasopharyngitis [Recovered/Resolved]
  - Spinal pain [Recovered/Resolved]
  - Pain in extremity [Recovered/Resolved]
  - Bladder dysfunction [Recovered/Resolved]
  - Gait disturbance [Not Recovered/Not Resolved]
  - Musculoskeletal pain [Recovering/Resolving]
  - Blood test abnormal [Recovered/Resolved]
  - Muscle spasms [Unknown]
  - Loss of consciousness [Recovered/Resolved]
  - Limb discomfort [Recovering/Resolving]
  - Off label use [Unknown]
  - Gait disturbance [Unknown]
  - Paraesthesia [Unknown]
  - Motor dysfunction [Unknown]
  - Fatigue [Recovered/Resolved]
  - Intentional product use issue [Unknown]
  - Muscle spasticity [Unknown]

NARRATIVE: CASE EVENT DATE: 201805
